FAERS Safety Report 17875470 (Version 1)
Quarter: 2020Q2

REPORT INFORMATION
  Report Type: Spontaneous
  Country: US (occurrence: US)
  Receive Date: 20200608
  Receipt Date: 20200608
  Transmission Date: 20200714
  Serious: Yes (Death, Life-Threatening, Hospitalization)
  Sender: FDA-Public Use
  Company Number: None

PATIENT
  Age: 63 Year
  Sex: Male
  Weight: 99 kg

DRUGS (1)
  1. WARFARIN (WARFARIN NA (EXELAN) 7.5MG TAB) [Suspect]
     Active Substance: WARFARIN SODIUM
     Indication: ATRIAL FIBRILLATION
     Dates: start: 20180326, end: 20200313

REACTIONS (3)
  - Haemorrhage intracranial [None]
  - Treatment noncompliance [None]
  - International normalised ratio increased [None]

NARRATIVE: CASE EVENT DATE: 20200313
